FAERS Safety Report 7598583-6 (Version None)
Quarter: 2011Q3

REPORT INFORMATION
  Report Type: 
  Country: None (occurrence: None)
  Receive Date: 20110709
  Receipt Date: 20110629
  Transmission Date: 20111222
  Serious: Yes (Other)
  Sender: FDA-Public Use
  Company Number: US-ASTRAZENECA-2011SE01993

PATIENT
  Age: 31 Year
  Sex: Female

DRUGS (5)
  1. SEROQUEL XR [Suspect]
     Indication: BIPOLAR DISORDER
     Route: 048
     Dates: start: 20050101
  2. LEMICTAL [Concomitant]
  3. SEROQUEL XR [Suspect]
     Indication: POST-TRAUMATIC STRESS DISORDER
     Route: 048
     Dates: start: 20050101
  4. SEROQUEL XR [Suspect]
     Route: 048
  5. SEROQUEL XR [Suspect]
     Route: 048

REACTIONS (7)
  - TACHYPHRENIA [None]
  - DRUG DOSE OMISSION [None]
  - ANXIETY [None]
  - ACCIDENT [None]
  - INCORRECT DOSE ADMINISTERED [None]
  - NECK EXPLORATION [None]
  - INSOMNIA [None]
